FAERS Safety Report 11888134 (Version 3)
Quarter: 2016Q2

REPORT INFORMATION
  Report Type: Spontaneous
  Country: US (occurrence: US)
  Receive Date: 20160105
  Receipt Date: 20160502
  Transmission Date: 20160815
  Serious: Yes (Other)
  Sender: FDA-Public Use
  Company Number: US-ASTRAZENECA-2015SF30665

PATIENT
  Sex: Male

DRUGS (1)
  1. SEROQUEL XR [Suspect]
     Active Substance: QUETIAPINE FUMARATE
     Route: 048

REACTIONS (8)
  - Gout [Unknown]
  - Renal disorder [Unknown]
  - Metabolic disorder [Unknown]
  - Depressed mood [Unknown]
  - Weight increased [Unknown]
  - Hypophagia [Unknown]
  - Mental disorder [Unknown]
  - Gastric dilatation [Unknown]
